FAERS Safety Report 5775114-4 (Version None)
Quarter: 2008Q2

REPORT INFORMATION
  Report Type: 
  Country: None (occurrence: None)
  Receive Date: 20080616
  Receipt Date: 20080616
  Transmission Date: 20081010
  Serious: Yes (Life-Threatening, Hospitalization, Disabling)
  Sender: FDA-Public Use
  Company Number: None

PATIENT
  Sex: Female
  Weight: 122.4712 kg

DRUGS (1)
  1. DONNATAL [Suspect]
     Indication: IRRITABLE BOWEL SYNDROME
     Dosage: 1 PILL TWICE PER DAY PO
     Route: 048
     Dates: start: 20071123, end: 20071206

REACTIONS (13)
  - CONJUNCTIVITIS [None]
  - CORNEAL DISORDER [None]
  - DRY EYE [None]
  - DYSPHAGIA [None]
  - EYE DISCHARGE [None]
  - HAND-FOOT-AND-MOUTH DISEASE [None]
  - NASOPHARYNGITIS [None]
  - ONYCHOMADESIS [None]
  - PRURITUS [None]
  - SCAR [None]
  - STEVENS-JOHNSON SYNDROME [None]
  - THERMAL BURN [None]
  - VISUAL ACUITY REDUCED [None]
